FAERS Safety Report 18383683 (Version 1)
Quarter: 2020Q4

REPORT INFORMATION
  Report Type: Spontaneous
  Country: US (occurrence: US)
  Receive Date: 20201014
  Receipt Date: 20201014
  Transmission Date: 20210114
  Serious: Yes (Other)
  Sender: FDA-Public Use
  Company Number: US-PFIZER INC-2020395194

PATIENT
  Age: 52 Year

DRUGS (3)
  1. PROTONIX [Suspect]
     Active Substance: PANTOPRAZOLE SODIUM
     Dosage: UNK
  2. LIPITOR [Suspect]
     Active Substance: ATORVASTATIN CALCIUM
     Dosage: UNK
  3. ALPRAZOLAM. [Suspect]
     Active Substance: ALPRAZOLAM
     Dosage: UNK

REACTIONS (1)
  - Hand fracture [Unknown]
